FAERS Safety Report 7233276-6 (Version None)
Quarter: 2011Q1

REPORT INFORMATION
  Report Type: 
  Country: None (occurrence: None)
  Receive Date: 20110119
  Receipt Date: 20110117
  Transmission Date: 20110831
  Serious: Yes (Hospitalization)
  Sender: FDA-Public Use
  Company Number: PHHO2010JP19788

PATIENT
  Sex: Male
  Weight: 54 kg

DRUGS (5)
  1. SIMULECT [Suspect]
     Indication: RENAL TRANSPLANT
     Dosage: 20 MG, UNK
     Route: 042
     Dates: start: 20100910
  2. NEORAL [Suspect]
     Indication: RENAL TRANSPLANT
     Dosage: 450 MG, UNK
     Route: 048
     Dates: start: 20080905, end: 20080907
  3. CERTICAN [Suspect]
     Indication: RENAL TRANSPLANT
     Dosage: 1.5 MG, UNK
     Route: 048
     Dates: start: 20080909
  4. SANDIMMUNE [Concomitant]
     Indication: RENAL TRANSPLANT
  5. MEDROL [Suspect]
     Indication: RENAL TRANSPLANT
     Dosage: 40 MG, UNK
     Route: 048
     Dates: start: 20080909

REACTIONS (2)
  - BLOOD CREATININE INCREASED [None]
  - DEHYDRATION [None]
